FAERS Safety Report 20961285 (Version 1)
Quarter: 2022Q2

REPORT INFORMATION
  Report Type: Spontaneous
  Country: US (occurrence: US)
  Receive Date: 20220615
  Receipt Date: 20220615
  Transmission Date: 20220720
  Serious: Yes (Other)
  Sender: FDA-Public Use
  Company Number: US-BAXTER-2022BAX012268

PATIENT
  Age: 73 Year
  Sex: Female
  Weight: 68.934 kg

DRUGS (20)
  1. DOXIL [Suspect]
     Active Substance: DOXORUBICIN HYDROCHLORIDE
     Indication: Breast cancer metastatic
     Dosage: FIRST CYCLE AT 50% THEN INCREASED TO 75% WITH SIGNIFICANT AES
     Route: 065
     Dates: start: 20210923, end: 202111
  2. DOXIL [Suspect]
     Active Substance: DOXORUBICIN HYDROCHLORIDE
     Indication: Metastases to bone
  3. AMLODIPINE [Concomitant]
     Active Substance: AMLODIPINE BESYLATE
     Indication: Product used for unknown indication
     Dosage: UNK, QD, TAKE 2 TABLETS
     Route: 048
     Dates: start: 20220303
  4. ATORVASTATIN [Concomitant]
     Active Substance: ATORVASTATIN
     Indication: Product used for unknown indication
     Dosage: UNK UNK, QD, TAKE 1 TABLET
     Route: 048
     Dates: start: 20220120
  5. CARVEDILOL [Concomitant]
     Active Substance: CARVEDILOL
     Indication: Product used for unknown indication
     Dosage: UNK
     Route: 065
     Dates: start: 20220322
  6. ELIQUIS [Concomitant]
     Active Substance: APIXABAN
     Indication: Product used for unknown indication
     Dosage: UNK UNK, BID, TAKE 1 TABLET
     Route: 048
     Dates: start: 20220307
  7. FAMOTIDINE [Concomitant]
     Active Substance: FAMOTIDINE
     Indication: Product used for unknown indication
     Dosage: UNK UNK, BID, TAKE 1 TABLET
     Route: 048
     Dates: start: 20220104
  8. GABAPENTIN [Concomitant]
     Active Substance: GABAPENTIN
     Indication: Product used for unknown indication
     Dosage: UNK
     Route: 065
     Dates: start: 20220304
  9. HYDROCODONE [Concomitant]
     Active Substance: HYDROCODONE
     Indication: Product used for unknown indication
     Dosage: UNK, TAKE 1 TABLET EVERY 4 HOURS AS NEEDED FOR 30 DAYS
     Route: 048
     Dates: start: 20220112
  10. ACETAMINOPHEN [Concomitant]
     Active Substance: ACETAMINOPHEN
     Indication: Product used for unknown indication
     Dosage: UNK, TAKE 1 TABLET EVERY 4 HOURS AS NEEDED FOR 30 DAYS
     Route: 048
     Dates: start: 20220112
  11. IBRANCE [Concomitant]
     Active Substance: PALBOCICLIB
     Indication: Product used for unknown indication
     Dosage: UNK, 1 TAB BY MOUTH DAYS 1-21, EVERY 28 DAYS
     Route: 048
     Dates: start: 20220510
  12. LETROZOLE [Concomitant]
     Active Substance: LETROZOLE
     Indication: Product used for unknown indication
     Dosage: UNK, TALE 1 TAB EVERY DAY BY ORAL ROUTE FOR 90 DAYS
     Route: 048
     Dates: start: 20220218
  13. LEVOCETIRIZINE [Concomitant]
     Active Substance: LEVOCETIRIZINE
     Indication: Product used for unknown indication
     Dosage: UNK, TAKE 1 TAB BY MOUTH ONCE DAILY IN THE EVENING
     Route: 048
     Dates: start: 20220307
  14. LIDOCAINE [Concomitant]
     Active Substance: LIDOCAINE
     Indication: Product used for unknown indication
     Dosage: UNK, APPLY 1 PATCH TO PAINFUL AREA. PATCH MAY REMAIN IN PLACE FOR UP TO 12 HRS IN ANY 24 HOUR PERIOD
     Route: 061
     Dates: start: 20210928
  15. LIDOCAINE [Concomitant]
     Active Substance: LIDOCAINE
     Indication: Product used for unknown indication
     Dosage: UNK, VISCOUS 2% MUCOSAL SOLUTION
     Route: 065
     Dates: start: 20211211
  16. METOPROLOL TARTRATE [Concomitant]
     Active Substance: METOPROLOL TARTRATE
     Indication: Product used for unknown indication
     Dosage: UNK, TAKE 1 TAB BY MOUTH TWICE DAILY WITH FOOD
     Route: 048
     Dates: start: 20220222
  17. ONDANSETRON HCL [Concomitant]
     Active Substance: ONDANSETRON HYDROCHLORIDE
     Indication: Product used for unknown indication
     Dosage: UNK, TAKE 1 TAB EVERY 8 HOURS BY ORAL ROUTE AS NEEDED FOR 30 DAYS
     Route: 048
     Dates: start: 20220218
  18. PROPAFENONE [Concomitant]
     Active Substance: PROPAFENONE
     Indication: Product used for unknown indication
     Dosage: 1 UNK, TAKE 1 TAB BY MOUTH 2 TIMES A DAY AS NEEDED
     Route: 048
     Dates: start: 20220222
  19. PALBOCICLIB [Concomitant]
     Active Substance: PALBOCICLIB
     Indication: Product used for unknown indication
     Dosage: UNK, QD (WILL TITRATE UP DEPENDING TOLERANCE)
     Route: 048
     Dates: start: 20220309
  20. Covid-19 vaccine [Concomitant]
     Indication: Product used for unknown indication
     Dosage: UNK, BOOSTER
     Route: 065
     Dates: start: 20211001

REACTIONS (4)
  - Neutropenia [Unknown]
  - Arthralgia [Unknown]
  - Chest discomfort [Unknown]
  - Fatigue [Unknown]

NARRATIVE: CASE EVENT DATE: 20220511
